FAERS Safety Report 17768812 (Version 1)
Quarter: 2020Q2

REPORT INFORMATION
  Report Type: Spontaneous
  Country: FR (occurrence: FR)
  Receive Date: 20200512
  Receipt Date: 20200512
  Transmission Date: 20200714
  Serious: Yes (Hospitalization)
  Sender: FDA-Public Use
  Company Number: FR-AUROBINDO-AUR-APL-2020-023960

PATIENT
  Age: 26 Year
  Sex: Female
  Weight: 180 kg

DRUGS (6)
  1. MAGNESIUM [Suspect]
     Active Substance: MAGNESIUM
     Indication: HYPOCALCAEMIA
     Dosage: 600 MILLIGRAM, ONCE A DAY
     Route: 048
  2. ALFACALCIDOL [Suspect]
     Active Substance: ALFACALCIDOL
     Indication: HYPOCALCAEMIA
     Dosage: 3 MICROGRAM, ONCE A DAY
     Route: 048
  3. ALFACALCIDOL [Suspect]
     Active Substance: ALFACALCIDOL
     Dosage: 4.5 MICROGRAM, ONCE A DAY
     Route: 048
  4. CHOLECALCIFEROL [Concomitant]
     Active Substance: CHOLECALCIFEROL
     Indication: HYPOCALCAEMIA
     Dosage: 3333 UNITS/DAY, DURING ALL OF THE FOLLOW-UP PERIOD
     Route: 048
  5. CALCIUM CARBONATE. [Suspect]
     Active Substance: CALCIUM CARBONATE
     Indication: HYPOCALCAEMIA
     Dosage: 4.5 GRAM, ONCE A DAY
     Route: 048
  6. CALCIUM GLUCONATE. [Suspect]
     Active Substance: CALCIUM GLUCONATE
     Indication: HYPOCALCAEMIA
     Dosage: UNK
     Route: 042

REACTIONS (1)
  - Drug ineffective [Unknown]
